FAERS Safety Report 18064069 (Version 1)
Quarter: 2020Q3

REPORT INFORMATION
  Report Type: Spontaneous
  Country: FR (occurrence: FR)
  Receive Date: 20200724
  Receipt Date: 20200724
  Transmission Date: 20201103
  Serious: Yes (Hospitalization)
  Sender: FDA-Public Use
  Company Number: FR-TEVA-2020-FR-1806465

PATIENT
  Age: 90 Year
  Sex: Male
  Weight: 60 kg

DRUGS (4)
  1. CIFLOX [CIPROFLOXACIN] [Suspect]
     Active Substance: CIPROFLOXACIN
     Indication: URINARY TRACT INFECTION
     Dosage: 1000 MG
     Route: 048
     Dates: start: 20200625, end: 20200706
  2. TAMSULOSINE [Suspect]
     Active Substance: TAMSULOSIN HYDROCHLORIDE
     Indication: URINARY TRACT DISORDER
     Dosage: 0.4 MG
     Route: 048
     Dates: start: 20200629
  3. CIPROFLOXACINE [Suspect]
     Active Substance: CIPROFLOXACIN
     Indication: URINARY TRACT INFECTION
     Dosage: 800 MG
     Route: 042
     Dates: start: 20200619, end: 20200625
  4. ELIQUIS [Suspect]
     Active Substance: APIXABAN
     Indication: ATRIAL FIBRILLATION
     Dosage: 10 MG
     Route: 048
     Dates: start: 20200622

REACTIONS (1)
  - Neutropenia [Recovering/Resolving]

NARRATIVE: CASE EVENT DATE: 20200629
